FAERS Safety Report 7103019-5 (Version None)
Quarter: 2010Q4

REPORT INFORMATION
  Report Type: 
  Country: None (occurrence: None)
  Receive Date: 20101115
  Receipt Date: 20101110
  Transmission Date: 20110411
  Serious: Yes (Death, Hospitalization)
  Sender: FDA-Public Use
  Company Number: PHHY2010NL75104

PATIENT
  Age: 65 Year
  Sex: Female
  Weight: 105 kg

DRUGS (1)
  1. ALISKIREN ALI+TAB [Suspect]
     Dosage: 300 MG
     Route: 048
     Dates: start: 20090401, end: 20090606

REACTIONS (2)
  - DEATH [None]
  - MESENTERIC ARTERY THROMBOSIS [None]
